FAERS Safety Report 9225539 (Version 2)
Quarter: 2013Q2

REPORT INFORMATION
  Report Type: Report from Study
  Country: DE (occurrence: DE)
  Receive Date: 20130411
  Receipt Date: 20130506
  Transmission Date: 20140414
  Serious: Yes (Death)
  Sender: FDA-Public Use
  Company Number: DE-ROCHE-1208960

PATIENT
  Sex: 0

DRUGS (3)
  1. ALTEPLASE [Suspect]
     Indication: ISCHAEMIC STROKE
     Dosage: OVER ONE HOUR
     Route: 040
  2. ASPIRIN [Concomitant]
     Route: 065
  3. HEPARIN [Concomitant]
     Route: 065

REACTIONS (1)
  - Cardiac arrest [Fatal]
